FAERS Safety Report 23015859 (Version 1)
Quarter: 2023Q4

REPORT INFORMATION
  Report Type: Spontaneous
  Country: US (occurrence: None)
  Receive Date: 20231001
  Receipt Date: 20231001
  Transmission Date: 20240110
  Serious: Yes (unspecified)
  Sender: FDA-Public Use
  Company Number: None

PATIENT
  Age: 62 Year
  Sex: Female
  Weight: 86.4 kg

DRUGS (19)
  1. AMLODIPINE BESYLATE [Suspect]
     Active Substance: AMLODIPINE BESYLATE
     Indication: Blood pressure measurement
  2. IRBESARTAN [Suspect]
     Active Substance: IRBESARTAN
  3. ALBUTEROL SULFATE HFA [Concomitant]
  4. MCG/ACT inhaler [Concomitant]
  5. Glucose Monitor [Concomitant]
  6. HYDROCHLOROTHIAZIDE [Concomitant]
     Active Substance: HYDROCHLOROTHIAZIDE
  7. GNP RESVERATROL RED WINE [Concomitant]
  8. ZYRTEC [Concomitant]
     Active Substance: CETIRIZINE HYDROCHLORIDE
  9. Wal-dryl, [Concomitant]
  10. TYLENOL [Concomitant]
     Active Substance: ACETAMINOPHEN
  11. FISH OIL [Concomitant]
     Active Substance: FISH OIL
  12. VITAMIN D [Concomitant]
     Active Substance: VITAMIN D NOS
  13. GARLIC [Concomitant]
     Active Substance: GARLIC
  14. Flintstone Vitamin with Immunity Support [Concomitant]
  15. ZINC [Concomitant]
     Active Substance: ZINC
  16. Calcium-Magnesium-Vitamin D [Concomitant]
  17. FLUTICASONE PROPIONATE [Concomitant]
     Active Substance: FLUTICASONE PROPIONATE
  18. actuation nasal spray [Concomitant]
  19. Refresh Plus natural tears [Concomitant]

REACTIONS (3)
  - Peripheral swelling [None]
  - Joint swelling [None]
  - Blood pressure increased [None]

NARRATIVE: CASE EVENT DATE: 20230830
